FAERS Safety Report 8880281 (Version 2)
Quarter: 2012Q4

REPORT INFORMATION
  Report Type: 
  Country: AT (occurrence: AT)
  Receive Date: 20121101
  Receipt Date: 20121203
  Transmission Date: 20130627
  Serious: Yes (Hospitalization)
  Sender: FDA-Public Use
  Company Number: AT-BRISTOL-MYERS SQUIBB COMPANY-16776973

PATIENT
  Age: 71 Year
  Sex: Male

DRUGS (7)
  1. ABILIFY [Suspect]
     Indication: GENERALISED ANXIETY DISORDER
     Route: 048
     Dates: start: 20120602, end: 20120711
  2. MIRTAZAPINE [Suspect]
     Indication: GENERALISED ANXIETY DISORDER
     Route: 048
     Dates: start: 20120506, end: 20120724
  3. CIPRALEX [Suspect]
     Indication: GENERALISED ANXIETY DISORDER
     Route: 048
     Dates: start: 20120602, end: 20120713
  4. PRAXITEN [Suspect]
     Indication: GENERALISED ANXIETY DISORDER
     Route: 048
     Dates: start: 20120516
  5. SIMVASTATIN [Concomitant]
  6. ACEMIN [Concomitant]
     Indication: HYPERTENSION
  7. LAEVOLAC [Concomitant]

REACTIONS (2)
  - Blood creatine phosphokinase increased [Recovered/Resolved]
  - Parkinson^s disease [Recovering/Resolving]
